FAERS Safety Report 9217645 (Version 3)
Quarter: 2013Q3

REPORT INFORMATION
  Report Type: Spontaneous
  Country: US (occurrence: US)
  Receive Date: 20130408
  Receipt Date: 20130717
  Transmission Date: 20140515
  Serious: Yes (Disabling)
  Sender: FDA-Public Use
  Company Number: US-009507513-1304USA001812

PATIENT
  Age: 54 Year
  Sex: Male
  Weight: 77.98 kg

DRUGS (9)
  1. PEG-INTRON [Suspect]
     Indication: HEPATITIS C
     Dosage: 150 MICROGRAM, QW REDIPEN
     Route: 058
     Dates: start: 20121207
  2. VICTRELIS [Suspect]
     Indication: HEPATITIS C
     Dosage: 800 MG, TID
     Route: 048
     Dates: start: 20121214, end: 20130121
  3. VICTRELIS [Suspect]
     Dosage: TOTAL DAILY DOSE 600 MG
     Route: 048
     Dates: start: 20130105
  4. RIBAPAK [Suspect]
     Indication: HEPATITIS C
     Dosage: TOTAL DAILY DOSE 1200 MG
     Route: 048
     Dates: start: 20121207
  5. ZOFRAN [Concomitant]
  6. TOBRADEX [Concomitant]
  7. AMITIZA [Concomitant]
  8. CITRACAL [Concomitant]
  9. ONDANSETRON HYDROCHLORIDE [Concomitant]

REACTIONS (7)
  - Constipation [Not Recovered/Not Resolved]
  - Syncope [Not Recovered/Not Resolved]
  - White blood cell count decreased [Not Recovered/Not Resolved]
  - Nocturia [Not Recovered/Not Resolved]
  - Anaemia [Not Recovered/Not Resolved]
  - Fatigue [Not Recovered/Not Resolved]
  - Fungal infection [Unknown]
